FAERS Safety Report 5799628-6 (Version None)
Quarter: 2008Q3

REPORT INFORMATION
  Report Type: 
  Country: None (occurrence: None)
  Receive Date: 20080702
  Receipt Date: 20080702
  Transmission Date: 20090109
  Serious: No
  Sender: FDA-Public Use
  Company Number: None

PATIENT
  Age: 72 Month
  Sex: Male

DRUGS (1)
  1. DIGITEK 0.125MG BERTEK [Suspect]

REACTIONS (5)
  - ABDOMINAL DISCOMFORT [None]
  - BLOOD CHOLESTEROL INCREASED [None]
  - CARDIAC ENZYMES INCREASED [None]
  - DIABETES MELLITUS [None]
  - HYPERTENSION [None]
